FAERS Safety Report 5603315-4 (Version None)
Quarter: 2008Q1

REPORT INFORMATION
  Report Type: 
  Country: None (occurrence: None)
  Receive Date: 20080122
  Receipt Date: 20080107
  Transmission Date: 20080703
  Serious: Yes (Hospitalization, Other)
  Sender: FDA-Public Use
  Company Number: 2008S1000558

PATIENT
  Age: 30 Year
  Sex: Female

DRUGS (2)
  1. VERAPAMIL [Suspect]
     Indication: HYPERTENSION
  2. METHYLDOPA [Suspect]
     Indication: HYPERTENSION

REACTIONS (12)
  - ALANINE AMINOTRANSFERASE INCREASED [None]
  - BLISTER [None]
  - BLOOD CHOLESTEROL INCREASED [None]
  - BREATH ODOUR [None]
  - CAESAREAN SECTION [None]
  - DRUG INEFFECTIVE [None]
  - HAEMORRHAGE [None]
  - HYPERTENSION [None]
  - LOW DENSITY LIPOPROTEIN INCREASED [None]
  - ORAL MUCOSA EROSION [None]
  - PEMPHIGUS [None]
  - POSTOPERATIVE WOUND COMPLICATION [None]
